FAERS Safety Report 6770010-8 (Version None)
Quarter: 2010Q2

REPORT INFORMATION
  Report Type: 
  Country: None (occurrence: None)
  Receive Date: 20100615
  Receipt Date: 20100607
  Transmission Date: 20101027
  Serious: Yes (Other)
  Sender: FDA-Public Use
  Company Number: IT-NOVOPROD-309855

PATIENT
  Sex: Female

DRUGS (3)
  1. LEVEMIR [Suspect]
     Indication: DIABETES MELLITUS
     Dosage: 22 IU, UNK
     Dates: start: 19920101
  2. METFORMIN HYDROCHLORIDE [Suspect]
     Indication: DIABETES MELLITUS
     Dosage: 2000 MG, QD
     Route: 048
     Dates: start: 20050101
  3. HUMULIN                            /00646001/ [Suspect]
     Indication: DIABETES MELLITUS
     Dosage: 46 IU, UNK
     Route: 042
     Dates: start: 19920101

REACTIONS (3)
  - AZOTAEMIA [None]
  - HYPOGLYCAEMIA [None]
  - SOPOR [None]
